FAERS Safety Report 8861257 (Version 2)
Quarter: 2012Q4

REPORT INFORMATION
  Report Type: 
  Country: US (occurrence: US)
  Receive Date: 20121026
  Receipt Date: 20121220
  Transmission Date: 20130627
  Serious: No
  Sender: FDA-Public Use
  Company Number: US-PFIZER INC-2012265488

PATIENT
  Sex: Male

DRUGS (1)
  1. CAVERJECT [Suspect]
     Dosage: 2.5 ug, UNK

REACTIONS (3)
  - Drug dispensing error [Unknown]
  - Wrong technique in drug usage process [Unknown]
  - Drug ineffective [Unknown]
